FAERS Safety Report 5896048-0 (Version None)
Quarter: 2008Q3

REPORT INFORMATION
  Report Type: 
  Country: None (occurrence: None)
  Receive Date: 20080924
  Receipt Date: 20080922
  Transmission Date: 20090109
  Serious: Yes (Life-Threatening)
  Sender: FDA-Public Use
  Company Number: US-WYE-H05302008

PATIENT
  Sex: Female
  Weight: 72.64 kg

DRUGS (2)
  1. ADVIL [Suspect]
     Indication: PAIN
     Dosage: 4 LIQUI-GELS IN 6.5 HOURS
     Route: 048
     Dates: start: 20080729, end: 20080729
  2. ADVIL [Suspect]
     Indication: ANGIOEDEMA

REACTIONS (6)
  - ANGIOEDEMA [None]
  - CONDITION AGGRAVATED [None]
  - FLUSHING [None]
  - HEADACHE [None]
  - HYPERSENSITIVITY [None]
  - PAIN [None]
